FAERS Safety Report 6028686-9 (Version None)
Quarter: 2009Q1

REPORT INFORMATION
  Report Type: 
  Country: None (occurrence: None)
  Receive Date: 20090106
  Receipt Date: 20081225
  Transmission Date: 20090719
  Serious: Yes (Hospitalization)
  Sender: FDA-Public Use
  Company Number: IL-ROCHE-606044

PATIENT
  Sex: Male
  Weight: 62 kg

DRUGS (4)
  1. PEG-INTERFERON ALFA 2A (RO 25-8310) [Suspect]
     Route: 058
     Dates: end: 20081222
  2. PEG-INTERFERON ALFA 2A (RO 25-8310) [Suspect]
     Route: 058
     Dates: start: 20081229
  3. RIBAVIRIN [Suspect]
     Route: 048
     Dates: end: 20081222
  4. RIBAVIRIN [Suspect]
     Route: 048
     Dates: start: 20081229

REACTIONS (2)
  - ANAEMIA [None]
  - LYMPHADENITIS [None]
